FAERS Safety Report 7324747-2 (Version None)
Quarter: 2011Q1

REPORT INFORMATION
  Report Type: 
  Country: None (occurrence: None)
  Receive Date: 20110301
  Receipt Date: 20110216
  Transmission Date: 20110831
  Serious: Yes (Other)
  Sender: FDA-Public Use
  Company Number: US-ELI_LILLY_AND_COMPANY-US201102005401

PATIENT
  Sex: Female

DRUGS (1)
  1. FORTEO [Suspect]
     Indication: CALCIUM DEFICIENCY
     Dosage: 20 UG, DAILY (1/D)
     Dates: start: 20100401, end: 20110208

REACTIONS (4)
  - INSOMNIA [None]
  - CHOLECYSTECTOMY [None]
  - PAIN IN EXTREMITY [None]
  - DIABETES MELLITUS [None]
